FAERS Safety Report 6537914-2 (Version None)
Quarter: 2010Q1

REPORT INFORMATION
  Report Type: 
  Country: None (occurrence: None)
  Receive Date: 20100114
  Receipt Date: 20100108
  Transmission Date: 20100710
  Serious: Yes (Hospitalization)
  Sender: FDA-Public Use
  Company Number: US-MERCK-1001USA00574

PATIENT
  Age: 32 Year
  Sex: Female

DRUGS (12)
  1. DECADRON [Suspect]
     Indication: NAUSEA
     Route: 048
  2. DECADRON [Suspect]
     Route: 048
  3. DECADRON [Suspect]
     Route: 048
  4. DECADRON [Suspect]
     Route: 048
  5. APREPITANT [Concomitant]
     Route: 065
  6. PALONOSETRON HYDROCHLORIDE [Concomitant]
     Route: 065
  7. LORAZEPAM [Concomitant]
     Route: 065
  8. PROCHLORPERAZINE [Concomitant]
     Route: 065
  9. ONDANSETRON [Concomitant]
     Route: 065
  10. CISPLATIN [Suspect]
     Route: 065
  11. PEMETREXED DISODIUM [Suspect]
     Route: 065
  12. DIPHENHYDRAMINE HYDROCHLORIDE [Concomitant]
     Route: 065

REACTIONS (1)
  - REVERSIBLE POSTERIOR LEUKOENCEPHALOPATHY SYNDROME [None]
